FAERS Safety Report 18567962 (Version 2)
Quarter: 2020Q4

REPORT INFORMATION
  Report Type: Report from Study
  Country: US (occurrence: US)
  Receive Date: 20201202
  Receipt Date: 20201202
  Transmission Date: 20210114
  Serious: Yes (Hospitalization)
  Sender: FDA-Public Use
  Company Number: US-GLAXOSMITHKLINE-US2020AMR190276

PATIENT
  Sex: Female

DRUGS (5)
  1. NIRAPARIB [Suspect]
     Active Substance: NIRAPARIB
     Dosage: UNK
     Dates: start: 20200224
  2. NIRAPARIB [Suspect]
     Active Substance: NIRAPARIB
     Dosage: 100 MG, QD
     Dates: start: 20200823
  3. NIRAPARIB [Suspect]
     Active Substance: NIRAPARIB
     Indication: OVARIAN CANCER
     Dosage: UNK
     Dates: start: 20200222, end: 20200822
  4. NIRAPARIB [Suspect]
     Active Substance: NIRAPARIB
     Dosage: 100 MG, QD
  5. NIRAPARIB [Suspect]
     Active Substance: NIRAPARIB
     Dosage: 200 MG, QD
     Dates: end: 20201101

REACTIONS (11)
  - Chills [Recovering/Resolving]
  - Pyrexia [Recovering/Resolving]
  - Paranasal sinus discomfort [Not Recovered/Not Resolved]
  - Blood pressure increased [Unknown]
  - Dyspnoea [Unknown]
  - Off label use [Unknown]
  - Nausea [Unknown]
  - Rhinorrhoea [Unknown]
  - Insomnia [Unknown]
  - Hospitalisation [Unknown]
  - Glomerular filtration rate decreased [Unknown]
